FAERS Safety Report 11110235 (Version 1)
Quarter: 2015Q2

REPORT INFORMATION
  Report Type: Spontaneous
  Country: GB (occurrence: GB)
  Receive Date: 20150513
  Receipt Date: 20150513
  Transmission Date: 20150821
  Serious: Yes (Disabling, Congenital Anomaly, Other)
  Sender: FDA-Public Use
  Company Number: GB-GLAXOSMITHKLINE-GB2015063863

PATIENT
  Age: 1 Hour
  Sex: Male
  Weight: 3.4 kg

DRUGS (3)
  1. ATAZANAVIR [Suspect]
     Active Substance: ATAZANAVIR
     Indication: PROPHYLAXIS AGAINST HIV INFECTION
     Route: 064
     Dates: start: 20140731, end: 20150427
  2. KIVEXA [Suspect]
     Active Substance: ABACAVIR SULFATE\LAMIVUDINE
     Indication: PROPHYLAXIS AGAINST HIV INFECTION
     Route: 064
     Dates: start: 20140731, end: 20150424
  3. RITONAVIR. [Suspect]
     Active Substance: RITONAVIR
     Indication: PROPHYLAXIS AGAINST HIV INFECTION
     Route: 064
     Dates: start: 20140731, end: 20150427

REACTIONS (5)
  - Foetal exposure during pregnancy [Unknown]
  - Foetal cystic hygroma [Recovered/Resolved]
  - Kidney duplex [Not Recovered/Not Resolved]
  - Umbilical cord abnormality [Recovered/Resolved]
  - Congenital ureterocele [Not Recovered/Not Resolved]
